FAERS Safety Report 4376691-0 (Version None)
Quarter: 2004Q2

REPORT INFORMATION
  Report Type: 
  Country: None (occurrence: None)
  Receive Date: 20040608
  Receipt Date: 20040525
  Transmission Date: 20050107
  Serious: Yes (Hospitalization)
  Sender: FDA-Public Use
  Company Number: US-JNJFOC-20040506489

PATIENT
  Age: 65 Year
  Sex: Female

DRUGS (3)
  1. DURAGESIC [Suspect]
     Indication: PAIN
     Dosage: 75 UG/HR, 1 IN 72 HOUR, TRANSDERMAL; SEE IMAGE
     Route: 062
     Dates: start: 20040101, end: 20040403
  2. DURAGESIC [Suspect]
     Indication: PAIN
     Dosage: 75 UG/HR, 1 IN 72 HOUR, TRANSDERMAL; SEE IMAGE
     Route: 062
     Dates: start: 20040403
  3. DURAGESIC [Suspect]
     Dosage: 100 UG/HR, 1 IN 72 HOUR
     Route: 062
     Dates: start: 20040403

REACTIONS (6)
  - ASTHENIA [None]
  - DEHYDRATION [None]
  - INADEQUATE ANALGESIA [None]
  - NAUSEA [None]
  - PHARMACEUTICAL PRODUCT COMPLAINT [None]
  - VOMITING [None]
